FAERS Safety Report 5032351-4 (Version None)
Quarter: 2006Q2

REPORT INFORMATION
  Report Type: 
  Country: None (occurrence: None)
  Receive Date: 20060621
  Receipt Date: 20060621
  Transmission Date: 20061013
  Serious: Yes (Disabling)
  Sender: FDA-Public Use
  Company Number: None

PATIENT
  Age: 44 Year
  Sex: Male
  Weight: 88.4514 kg

DRUGS (2)
  1. TRAVATAN [Suspect]
     Indication: GLAUCOMA
     Dosage: 1 DROP EACH EYE DAILY OPHTHALMIC
     Route: 047
     Dates: start: 20060526, end: 20060528
  2. TRAVATAN [Suspect]
     Indication: GLAUCOMA
     Dosage: 1 DROP EACH EYE DAILY OPHTHALMIC
     Route: 047
     Dates: start: 20060618, end: 20060620

REACTIONS (6)
  - APPLICATION SITE IRRITATION [None]
  - BLEPHARITIS [None]
  - CONJUNCTIVITIS [None]
  - EYE DISCHARGE [None]
  - EYE IRRITATION [None]
  - THERAPEUTIC PRODUCT CONTAMINATION [None]
